FAERS Safety Report 22306089 (Version 2)
Quarter: 2023Q2

REPORT INFORMATION
  Report Type: Spontaneous
  Country: FR (occurrence: FR)
  Receive Date: 20230511
  Receipt Date: 20230512
  Transmission Date: 20230722
  Serious: Yes (Life-Threatening)
  Sender: FDA-Public Use
  Company Number: FR-ROCHE-3347298

PATIENT
  Age: 69 Year
  Sex: Female

DRUGS (25)
  1. DOXORUBICIN [Suspect]
     Active Substance: DOXORUBICIN
     Indication: Follicular lymphoma
     Route: 042
     Dates: start: 201606, end: 201612
  2. CARMUSTINE [Suspect]
     Active Substance: CARMUSTINE
     Indication: Follicular lymphoma
     Route: 048
     Dates: start: 201907, end: 201907
  3. DEXAMETHASONE [Suspect]
     Active Substance: DEXAMETHASONE
     Indication: Follicular lymphoma
     Route: 048
  4. VINCRISTINE SULFATE [Suspect]
     Active Substance: VINCRISTINE SULFATE
     Indication: Follicular lymphoma
     Route: 042
     Dates: start: 201606, end: 201612
  5. OXALIPLATIN [Suspect]
     Active Substance: OXALIPLATIN
     Indication: Follicular lymphoma
     Route: 042
     Dates: start: 2021, end: 2021
  6. CYCLOPHOSPHAMIDE [Suspect]
     Active Substance: CYCLOPHOSPHAMIDE
     Indication: Follicular lymphoma
     Route: 042
     Dates: start: 201606, end: 201612
  7. LEUCOVORIN CALCIUM [Suspect]
     Active Substance: LEUCOVORIN CALCIUM
     Indication: Vitamin supplementation
     Route: 048
  8. CARBOPLATIN [Suspect]
     Active Substance: CARBOPLATIN
     Indication: Follicular lymphoma
     Route: 042
     Dates: start: 201901, end: 201907
  9. CYTARABINE [Suspect]
     Active Substance: CYTARABINE
     Indication: Follicular lymphoma
     Route: 042
  10. KARDEGIC [Suspect]
     Active Substance: ASPIRIN DL-LYSINE
     Indication: Cardiovascular event prophylaxis
     Route: 048
  11. PREDNISONE [Suspect]
     Active Substance: PREDNISONE
     Indication: Follicular lymphoma
     Route: 042
     Dates: start: 201606, end: 201612
  12. MELPHALAN [Suspect]
     Active Substance: MELPHALAN
     Indication: Follicular lymphoma
     Route: 042
     Dates: start: 201907, end: 201907
  13. OXAZEPAM [Suspect]
     Active Substance: OXAZEPAM
     Indication: Anxiety
     Route: 048
  14. MONJUVI [Suspect]
     Active Substance: TAFASITAMAB-CXIX
     Indication: Follicular lymphoma
     Route: 048
     Dates: start: 202207
  15. BACTRIM [Suspect]
     Active Substance: SULFAMETHOXAZOLE\TRIMETHOPRIM
     Indication: Pneumocystis jirovecii pneumonia
     Route: 048
  16. PENICILLIN V [Suspect]
     Active Substance: PENICILLIN V
     Indication: Antibiotic prophylaxis
     Route: 048
  17. GEMCITABINE [Suspect]
     Active Substance: GEMCITABINE
     Indication: Follicular lymphoma
     Route: 042
     Dates: start: 2021, end: 2021
  18. SERTRALINE [Suspect]
     Active Substance: SERTRALINE HYDROCHLORIDE
     Indication: Depression
     Route: 048
  19. RITUXIMAB [Suspect]
     Active Substance: RITUXIMAB
     Indication: Follicular lymphoma
     Route: 042
     Dates: start: 201901, end: 201907
  20. RITUXIMAB [Suspect]
     Active Substance: RITUXIMAB
     Route: 042
     Dates: start: 201908, end: 202103
  21. RITUXIMAB [Suspect]
     Active Substance: RITUXIMAB
     Route: 042
     Dates: start: 201606, end: 201612
  22. REVLIMID [Suspect]
     Active Substance: LENALIDOMIDE
     Indication: Follicular lymphoma
     Route: 048
     Dates: start: 202207, end: 202302
  23. ATENOLOL [Suspect]
     Active Substance: ATENOLOL
     Indication: Extrasystoles
     Route: 048
  24. VALACYCLOVIR HYDROCHLORIDE [Suspect]
     Active Substance: VALACYCLOVIR HYDROCHLORIDE
     Indication: Antiviral prophylaxis
     Route: 048
  25. ETOPOSIDE [Suspect]
     Active Substance: ETOPOSIDE
     Indication: Follicular lymphoma
     Route: 042
     Dates: start: 201907, end: 201907

REACTIONS (1)
  - Gastric cancer [Not Recovered/Not Resolved]

NARRATIVE: CASE EVENT DATE: 20230207
